FAERS Safety Report 7584087-3 (Version None)
Quarter: 2011Q2

REPORT INFORMATION
  Report Type: 
  Country: None (occurrence: None)
  Receive Date: 20110630
  Receipt Date: 20110627
  Transmission Date: 20111010
  Serious: Yes (Hospitalization)
  Sender: FDA-Public Use
  Company Number: US-MERCK-1105USA01170

PATIENT
  Age: 60 Year
  Sex: Female

DRUGS (34)
  1. OXYCONTIN [Concomitant]
     Route: 065
     Dates: start: 20010101, end: 20031201
  2. QUININE SULFATE [Concomitant]
     Route: 065
     Dates: start: 20051031, end: 20080501
  3. POTASSIUM CHLORIDE [Concomitant]
     Route: 065
     Dates: start: 20051027
  4. LYSINE HYDROCHLORIDE [Concomitant]
     Route: 065
     Dates: start: 19910101
  5. SINGULAIR [Concomitant]
     Route: 048
     Dates: start: 20040316
  6. BELLASPAS [Concomitant]
     Route: 065
     Dates: start: 20060707, end: 20070205
  7. CEPHALEXIN [Concomitant]
     Route: 065
     Dates: start: 20060414, end: 20060423
  8. GUAIFENESIN DM [Concomitant]
     Route: 065
     Dates: start: 20070317, end: 20070326
  9. POLYSACCHARIDE IRON COMPLEX [Concomitant]
     Route: 065
     Dates: start: 19910101
  10. RESVERATROL [Concomitant]
     Route: 065
     Dates: start: 20090101
  11. [THERAPY UNSPECIFIED] [Concomitant]
     Route: 065
     Dates: start: 20060707, end: 20070127
  12. IRON (UNSPECIFIED) [Concomitant]
     Route: 065
     Dates: start: 19910101
  13. VITAMINS (UNSPECIFIED) [Concomitant]
     Route: 065
     Dates: start: 19860101
  14. MAGNESIUM (UNSPECIFIED) [Concomitant]
     Route: 065
     Dates: start: 19910101
  15. BEXTRA [Concomitant]
     Route: 065
     Dates: end: 20050101
  16. FLONASE [Concomitant]
     Route: 065
     Dates: start: 20040316, end: 20040615
  17. ASCORBIC ACID [Concomitant]
     Route: 065
     Dates: start: 19910101
  18. VITAMIN D (UNSPECIFIED) [Concomitant]
     Route: 065
     Dates: start: 19910101
  19. UBIDECARENONE [Concomitant]
     Route: 065
     Dates: start: 20070101
  20. PREMPRO [Concomitant]
     Route: 065
     Dates: end: 20100501
  21. HYDROCODONE BITARTRATE AND ACETAMINOPHEN [Concomitant]
     Route: 065
     Dates: start: 20010101, end: 20031201
  22. DURAGESIC-100 [Concomitant]
     Route: 065
     Dates: start: 20040201, end: 20051201
  23. MENTAX [Concomitant]
     Route: 065
     Dates: start: 20040517
  24. CALCIUM (UNSPECIFIED) [Concomitant]
     Route: 065
     Dates: start: 19910101
  25. FOLIC ACID [Concomitant]
     Route: 065
     Dates: start: 19910101
  26. CELEBREX [Concomitant]
     Route: 065
  27. HORMONES (UNSPECIFIED) [Concomitant]
     Route: 065
     Dates: end: 20110501
  28. OMEGA-3 MARINE TRIGLYCERIDES [Concomitant]
     Route: 065
     Dates: start: 19910101
  29. FOSAMAX [Suspect]
     Indication: OSTEOPOROSIS
     Route: 048
     Dates: start: 19980101, end: 20100401
  30. TOPROL-XL [Concomitant]
     Route: 065
     Dates: start: 20030129, end: 20030206
  31. METHADONE HYDROCHLORIDE [Concomitant]
     Route: 065
     Dates: start: 20051201, end: 20100301
  32. PENICILLIN VK [Concomitant]
     Route: 065
     Dates: start: 20050830, end: 20050909
  33. AMOXICILLIN AND CLAVULANATE POTASSIUM [Concomitant]
     Route: 065
     Dates: start: 20070317, end: 20070326
  34. CHOLECALCIFEROL [Concomitant]
     Route: 065
     Dates: start: 19910101

REACTIONS (5)
  - NAUSEA [None]
  - FEMUR FRACTURE [None]
  - CARDIOVASCULAR DISORDER [None]
  - RIB FRACTURE [None]
  - DIZZINESS [None]
